FAERS Safety Report 13898077 (Version 1)
Quarter: 2017Q3

REPORT INFORMATION
  Report Type: Spontaneous
  Country: US (occurrence: None)
  Receive Date: 20170823
  Receipt Date: 20170823
  Transmission Date: 20171127
  Serious: Yes (Hospitalization)
  Sender: FDA-Public Use
  Company Number: None

PATIENT
  Age: 63 Year
  Sex: Male

DRUGS (4)
  1. TEMOZOLOMIDE 5 MG [Suspect]
     Active Substance: TEMOZOLOMIDE
     Indication: BRAIN NEOPLASM MALIGNANT
     Dosage: Q-DAY M-F WITH RADIA
     Route: 048
     Dates: start: 20170512
  2. TEMOZOLAMIDE 20 MG [Suspect]
     Active Substance: TEMOZOLOMIDE
  3. TEMOZOLOMIDE 140 MG [Suspect]
     Active Substance: TEMOZOLOMIDE
     Dosage: Q-DAY M-F WITH RADIA
     Route: 048
  4. ENOXAPARIN [Concomitant]
     Active Substance: ENOXAPARIN

REACTIONS (2)
  - Drug dose omission [None]
  - Therapy change [None]

NARRATIVE: CASE EVENT DATE: 20170626
